FAERS Safety Report 21358846 (Version 1)
Quarter: 2022Q3

REPORT INFORMATION
  Report Type: Spontaneous
  Country: US (occurrence: None)
  Receive Date: 20220920
  Receipt Date: 20220920
  Transmission Date: 20221027
  Serious: No
  Sender: FDA-Public Use
  Company Number: None

PATIENT
  Sex: Male
  Weight: 80.29 kg

DRUGS (29)
  1. ABIRATERONE ACETATE [Suspect]
     Active Substance: ABIRATERONE ACETATE
     Indication: Prostate cancer
     Dosage: FREQUENCY : DAILY;?
     Route: 048
     Dates: start: 20220803
  2. PREDNISONE [Suspect]
     Active Substance: PREDNISONE
     Indication: Prostate cancer
     Dosage: FREQUENCY : TWICE A DAY;?
     Route: 048
     Dates: start: 20220803
  3. ACYCLOVIR [Concomitant]
     Active Substance: ACYCLOVIR
  4. ALBUTEROL SULFATE [Concomitant]
     Active Substance: ALBUTEROL SULFATE
  5. AMLODIPINE [Concomitant]
     Active Substance: AMLODIPINE BESYLATE
  6. BACTRIM [Concomitant]
     Active Substance: SULFAMETHOXAZOLE\TRIMETHOPRIM
  7. CALCIUM [Concomitant]
     Active Substance: CALCIUM
  8. CLARITIN [Concomitant]
     Active Substance: LORATADINE
  9. DESONIDE [Concomitant]
     Active Substance: DESONIDE
  10. DOCUSATE SODIUM [Concomitant]
     Active Substance: DOCUSATE SODIUM
  11. ELIGARD [Concomitant]
     Active Substance: LEUPROLIDE ACETATE
  12. ENALAPRIL [Concomitant]
     Active Substance: ENALAPRIL
  13. FINASTERIDE [Concomitant]
     Active Substance: FINASTERIDE
  14. GABAPENTIN [Concomitant]
     Active Substance: GABAPENTIN
  15. GINKGO [Concomitant]
     Active Substance: GINKGO
  16. GLYCOLAX [Concomitant]
     Active Substance: POLYETHYLENE GLYCOL 3350
  17. HYDROCHLOROTHIAZIDE [Concomitant]
     Active Substance: HYDROCHLOROTHIAZIDE
  18. IPRATRIPIUM BROMIDE [Concomitant]
  19. LOMOTIL [Concomitant]
     Active Substance: ATROPINE SULFATE\DIPHENOXYLATE HYDROCHLORIDE
  20. MAGNESIUM [Concomitant]
     Active Substance: MAGNESIUM
  21. VITAMINS [Concomitant]
     Active Substance: VITAMINS
  22. SENOKOT [Concomitant]
     Active Substance: SENNOSIDES
  23. TAMSULOSIN [Concomitant]
     Active Substance: TAMSULOSIN
  24. TRAMADOL [Concomitant]
     Active Substance: TRAMADOL
  25. TRIAMCINOLONE [Concomitant]
     Active Substance: TRIAMCINOLONE
  26. VITAMIN B12 [Concomitant]
     Active Substance: CYANOCOBALAMIN
  27. VITAMIN C [Concomitant]
     Active Substance: ASCORBIC ACID
  28. VITAMIN D3 [Concomitant]
     Active Substance: CHOLECALCIFEROL
  29. XGEVA [Concomitant]
     Active Substance: DENOSUMAB

REACTIONS (1)
  - Disease progression [None]
